FAERS Safety Report 7234391-3 (Version None)
Quarter: 2011Q1

REPORT INFORMATION
  Report Type: 
  Country: None (occurrence: None)
  Receive Date: 20110119
  Receipt Date: 20110111
  Transmission Date: 20110831
  Serious: Yes (Death, Other)
  Sender: FDA-Public Use
  Company Number: GB-BAXTER-2010BH030754

PATIENT
  Sex: Female

DRUGS (4)
  1. DIANEAL PD-1 [Suspect]
     Route: 033
     Dates: end: 20101201
  2. DIANEAL PD-1 [Suspect]
     Indication: PERITONEAL DIALYSIS
     Route: 033
     Dates: end: 20101201
  3. DIANEAL PD-1 [Suspect]
     Route: 033
     Dates: end: 20101201
  4. DIANEAL PD-1 [Suspect]
     Route: 033
     Dates: end: 20101201

REACTIONS (5)
  - INFECTION PARASITIC [None]
  - PERITONITIS [None]
  - DEATH [None]
  - TUBERCULOSIS [None]
  - H1N1 INFLUENZA [None]
